FAERS Safety Report 12526480 (Version 1)
Quarter: 2016Q3

REPORT INFORMATION
  Report Type: Spontaneous
  Country: US (occurrence: US)
  Receive Date: 20160705
  Receipt Date: 20160705
  Transmission Date: 20161109
  Serious: No
  Sender: FDA-Public Use
  Company Number: US-ASTRAZENECA-2016SE56571

PATIENT
  Age: 86 Year
  Sex: Female
  Weight: 81.6 kg

DRUGS (5)
  1. CRESTOR [Suspect]
     Active Substance: ROSUVASTATIN CALCIUM
     Indication: CORONARY ARTERY DISEASE
     Route: 048
  2. POTASSIUM [Concomitant]
     Active Substance: POTASSIUM
     Indication: SUPPLEMENTATION THERAPY
     Route: 048
  3. CRESTOR [Suspect]
     Active Substance: ROSUVASTATIN CALCIUM
     Indication: CORONARY ARTERY DISEASE
     Route: 048
     Dates: end: 20160520
  4. ATENOLOL. [Suspect]
     Active Substance: ATENOLOL
     Indication: BLOOD PRESSURE DECREASED
     Route: 048
  5. LASIX GENERIC [Concomitant]
     Indication: DIURETIC THERAPY
     Route: 048

REACTIONS (17)
  - Arthritis [Unknown]
  - Myalgia [Unknown]
  - Cardiac failure congestive [Unknown]
  - Body height decreased [Unknown]
  - Product use issue [Unknown]
  - Peripheral swelling [Unknown]
  - Pain [Unknown]
  - Osteoporosis [Unknown]
  - Gait disturbance [Unknown]
  - Coronary artery disease [Unknown]
  - Erythema [Unknown]
  - Off label use [Unknown]
  - Joint swelling [Unknown]
  - Muscle spasms [Unknown]
  - Intentional product misuse [Unknown]
  - Limb injury [Unknown]
  - Bone pain [Unknown]

NARRATIVE: CASE EVENT DATE: 2016
